FAERS Safety Report 25542667 (Version 1)
Quarter: 2025Q3

REPORT INFORMATION
  Report Type: Report from Study
  Country: US (occurrence: US)
  Receive Date: 20250711
  Receipt Date: 20250711
  Transmission Date: 20251020
  Serious: Yes (Other)
  Sender: ABBVIE
  Company Number: US-ABBVIE-6362000

PATIENT
  Age: 78 Year
  Sex: Female

DRUGS (2)
  1. HUMIRA [Suspect]
     Active Substance: ADALIMUMAB
     Indication: Neovascular age-related macular degeneration
     Route: 058
     Dates: start: 20250629
  2. HUMIRA [Suspect]
     Active Substance: ADALIMUMAB
     Indication: Birdshot chorioretinopathy

REACTIONS (5)
  - Neovascular age-related macular degeneration [Unknown]
  - Off label use [Recovering/Resolving]
  - Birdshot chorioretinopathy [Unknown]
  - Wrong technique in product usage process [Unknown]
  - Injection site discharge [Unknown]

NARRATIVE: CASE EVENT DATE: 20250101
